FAERS Safety Report 10306580 (Version 2)
Quarter: 2014Q4

REPORT INFORMATION
  Report Type: Other
  Country: US (occurrence: US)
  Receive Date: 20140715
  Receipt Date: 20141030
  Transmission Date: 20150528
  Serious: Yes (Hospitalization)
  Sender: FDA-Public Use
  Company Number: US-BRISTOL-MYERS SQUIBB COMPANY-21187125

PATIENT
  Age: 57 Year
  Sex: Female

DRUGS (1)
  1. METFORMIN HCL [Suspect]
     Active Substance: METFORMIN HYDROCHLORIDE
     Indication: TYPE 2 DIABETES MELLITUS
     Dosage: TOTAL DOSE 500MG?500MG BID
     Dates: start: 2002

REACTIONS (6)
  - Electrolyte imbalance [Recovered/Resolved]
  - Colitis [Unknown]
  - Chronic gastritis [Unknown]
  - Diarrhoea [Recovered/Resolved]
  - Orthostatic hypotension [Unknown]
  - Asthenia [Unknown]
